FAERS Safety Report 7879964-X (Version None)
Quarter: 2011Q4

REPORT INFORMATION
  Report Type: 
  Country: None (occurrence: None)
  Receive Date: 20111101
  Receipt Date: 20111026
  Transmission Date: 20120403
  Serious: Yes (Hospitalization)
  Sender: FDA-Public Use
  Company Number: US-AMGEN-USASP2011055568

PATIENT
  Age: 55 Year
  Sex: Male

DRUGS (2)
  1. ENBREL [Suspect]
     Indication: PSORIATIC ARTHROPATHY
     Dosage: 50 MG, QWK
     Dates: start: 20051101, end: 20110812
  2. ENBREL [Suspect]
     Indication: PSORIASIS

REACTIONS (3)
  - PSORIATIC ARTHROPATHY [None]
  - PANCREATITIS [None]
  - PSORIASIS [None]
